FAERS Safety Report 24981011 (Version 2)
Quarter: 2025Q2

REPORT INFORMATION
  Report Type: Report from Study
  Country: DE (occurrence: DE)
  Receive Date: 20250218
  Receipt Date: 20250609
  Transmission Date: 20250717
  Serious: Yes (Other)
  Sender: AMGEN
  Company Number: DE-AMGEN-DEUNI2024258010

PATIENT
  Age: 84 Year
  Sex: Female
  Weight: 57 kg

DRUGS (2)
  1. CARFILZOMIB [Suspect]
     Active Substance: CARFILZOMIB
     Indication: Plasma cell myeloma
     Route: 065
     Dates: start: 20210708, end: 20240709
  2. REVLIMID [Suspect]
     Active Substance: LENALIDOMIDE
     Indication: Plasma cell myeloma
     Route: 065
     Dates: start: 20210708, end: 20240624

REACTIONS (2)
  - Acute myeloid leukaemia [Unknown]
  - Myelodysplastic syndrome/myeloproliferative neoplasm overlap syndrome [Not Recovered/Not Resolved]

NARRATIVE: CASE EVENT DATE: 20241118
